FAERS Safety Report 24397092 (Version 1)
Quarter: 2024Q4

REPORT INFORMATION
  Report Type: Spontaneous
  Country: US (occurrence: None)
  Receive Date: 20241003
  Receipt Date: 20241003
  Transmission Date: 20250115
  Serious: Yes (Hospitalization)
  Sender: Public
  Company Number: None

PATIENT
  Age: 76 Year
  Sex: Male
  Weight: 98 kg

DRUGS (1)
  1. HYDROCHLOROTHIAZIDE [Suspect]
     Active Substance: HYDROCHLOROTHIAZIDE
     Dosage: FREQUENCY : DAILY;?
     Route: 048

REACTIONS (6)
  - Inappropriate antidiuretic hormone secretion [None]
  - Hypovolaemia [None]
  - Hyponatraemia [None]
  - Dyspnoea exertional [None]
  - Lung neoplasm malignant [None]
  - Asthenia [None]

NARRATIVE: CASE EVENT DATE: 20240314
